FAERS Safety Report 6144027-0 (Version None)
Quarter: 2009Q2

REPORT INFORMATION
  Report Type: 
  Country: None (occurrence: None)
  Receive Date: 20090406
  Receipt Date: 20090326
  Transmission Date: 20091009
  Serious: Yes (Hospitalization, Other)
  Sender: FDA-Public Use
  Company Number: JP-AMGEN-US341210

PATIENT
  Sex: Male
  Weight: 47 kg

DRUGS (1)
  1. ENBREL [Suspect]
     Indication: RHEUMATOID ARTHRITIS
     Dosage: UNSPECIFIED DOSE FORM, TWICE WEEKLY
     Route: 058
     Dates: start: 20080212, end: 20090309

REACTIONS (2)
  - HOT FLUSH [None]
  - PULMONARY TUBERCULOSIS [None]
